FAERS Safety Report 5001291-9 (Version None)
Quarter: 2006Q2

REPORT INFORMATION
  Report Type: 
  Country: None (occurrence: None)
  Receive Date: 20060512
  Receipt Date: 20050131
  Transmission Date: 20061013
  Serious: Yes (Death)
  Sender: FDA-Public Use
  Company Number: US-MERCK-0502USA00104

PATIENT
  Age: 53 Year
  Sex: Male
  Weight: 84 kg

DRUGS (8)
  1. VIOXX [Suspect]
     Indication: BACK PAIN
     Route: 048
     Dates: start: 19990101, end: 20011031
  2. VIOXX [Suspect]
     Route: 048
     Dates: start: 19990101, end: 20011031
  3. VIOXX [Suspect]
     Route: 048
     Dates: start: 19990101, end: 20011031
  4. VIOXX [Suspect]
     Route: 048
     Dates: start: 19990101, end: 20011031
  5. VIOXX [Suspect]
     Indication: SHOULDER PAIN
     Route: 048
     Dates: start: 19990101, end: 20011031
  6. VIOXX [Suspect]
     Route: 048
     Dates: start: 19990101, end: 20011031
  7. VIOXX [Suspect]
     Route: 048
     Dates: start: 19990101, end: 20011031
  8. VIOXX [Suspect]
     Route: 048
     Dates: start: 19990101, end: 20011031

REACTIONS (2)
  - ARTERIOSPASM CORONARY [None]
  - CARDIO-RESPIRATORY ARREST [None]
